FAERS Safety Report 5989724-2 (Version None)
Quarter: 2008Q4

REPORT INFORMATION
  Report Type: 
  Country: None (occurrence: None)
  Receive Date: 20081210
  Receipt Date: 20081203
  Transmission Date: 20090506
  Serious: Yes (Other)
  Sender: FDA-Public Use
  Company Number: US-GENENTECH-273046

PATIENT
  Sex: Male

DRUGS (3)
  1. BEVACIZUMAB [Suspect]
     Indication: HEPATIC NEOPLASM MALIGNANT
     Dosage: 10 MG/KG, DAYS 1+15, 28 DAY CYCLE
     Route: 042
     Dates: start: 20080124
  2. ERLOTINIB [Suspect]
     Indication: HEPATIC NEOPLASM MALIGNANT
     Dosage: 150 MG, QD
     Route: 048
     Dates: start: 20080124
  3. ERLOTINIB [Suspect]
     Dosage: 50 MG, QD
     Route: 048

REACTIONS (3)
  - ABDOMINAL PAIN [None]
  - MUCOSAL INFLAMMATION [None]
  - PLATELET COUNT DECREASED [None]
